FAERS Safety Report 8688707 (Version 4)
Quarter: 2018Q3

REPORT INFORMATION
  Report Type: Spontaneous
  Country: FR (occurrence: FR)
  Receive Date: 20120727
  Receipt Date: 20180910
  Transmission Date: 20181010
  Serious: Yes (Hospitalization, Other)
  Sender: FDA-Public Use
  Company Number: FR-ASTRAZENECA-2012SE50862

PATIENT
  Age: 431 Month
  Sex: Female
  Weight: 55 kg

DRUGS (8)
  1. TERALITHE [Concomitant]
     Active Substance: LITHIUM CARBONATE
     Route: 048
  2. ANAFRANIL [Concomitant]
     Active Substance: CLOMIPRAMINE HYDROCHLORIDE
     Route: 048
  3. TERCIAN [Concomitant]
     Active Substance: CYAMEMAZINE
     Route: 048
  4. LEVOTHYROX [Concomitant]
     Active Substance: LEVOTHYROXINE
     Route: 048
  5. LAMICTAL [Concomitant]
     Active Substance: LAMOTRIGINE
     Route: 048
  6. LEPTICUR [Suspect]
     Active Substance: TROPATEPINE HYDROCHLORIDE
     Indication: DYSKINESIA
     Route: 048
     Dates: end: 20120626
  7. XEROQUEL [Suspect]
     Active Substance: QUETIAPINE FUMARATE
     Indication: BIPOLAR DISORDER
     Route: 048
  8. ESPERAL [Concomitant]
     Active Substance: DISULFIRAM
     Route: 048

REACTIONS (12)
  - Status epilepticus [Unknown]
  - Ballismus [Recovered/Resolved]
  - Anxiety [Unknown]
  - Intentional product misuse [Unknown]
  - Underdose [Unknown]
  - Chorea [Recovered/Resolved]
  - Electrocardiogram QT prolonged [Unknown]
  - Drug withdrawal syndrome [Recovered/Resolved]
  - Abdominal pain [Unknown]
  - Fungal infection [Unknown]
  - Speech disorder [Unknown]
  - Diarrhoea [Unknown]

NARRATIVE: CASE EVENT DATE: 201206
